FAERS Safety Report 4850963-5 (Version None)
Quarter: 2005Q4

REPORT INFORMATION
  Report Type: 
  Country: None (occurrence: None)
  Receive Date: 20051209
  Receipt Date: 20051209
  Transmission Date: 20060501
  Serious: Yes (Other)
  Sender: FDA-Public Use
  Company Number: None

PATIENT
  Sex: Male
  Weight: 72 kg

DRUGS (1)
  1. LISINOPRIL [Suspect]
     Indication: DRUG WITHDRAWAL SYNDROME
     Dosage: 1 TABLET DAILY
     Dates: start: 20040423, end: 20050713

REACTIONS (1)
  - URTICARIA GENERALISED [None]
